FAERS Safety Report 8118918-5 (Version None)
Quarter: 2012Q1

REPORT INFORMATION
  Report Type: 
  Country: None (occurrence: None)
  Receive Date: 20120202
  Receipt Date: 20120126
  Transmission Date: 20120608
  Serious: Yes (Congenital Anomaly, Other)
  Sender: FDA-Public Use
  Company Number: CL-378-2012

PATIENT
  Age: 1 Day
  Weight: 2.14 kg

DRUGS (1)
  1. ONDANSETRON [Suspect]
     Indication: HYPEREMESIS GRAVIDARUM

REACTIONS (3)
  - PREMATURE BABY [None]
  - FOETAL GROWTH RESTRICTION [None]
  - MATERNAL DRUGS AFFECTING FOETUS [None]
